FAERS Safety Report 8777710 (Version 1)
Quarter: 2012Q4

REPORT INFORMATION
  Report Type: 
  Country: US (occurrence: US)
  Receive Date: 20120912
  Receipt Date: 20120912
  Transmission Date: 20130627
  Serious: No
  Sender: FDA-Public Use
  Company Number: US-VERTEX PHARMACEUTICAL INC.-AE-2012-003478

PATIENT
  Age: 47 Year
  Sex: Female

DRUGS (4)
  1. VX-950 [Suspect]
     Indication: HEPATITIS C
     Dosage: UNK
     Route: 048
     Dates: start: 20120119, end: 20120413
  2. RIBASPHERE [Concomitant]
     Indication: HEPATITIS C
     Dosage: UNK
     Dates: start: 20120119
  3. PEGINTRON [Concomitant]
     Indication: HEPATITIS C
     Dosage: UNK
     Dates: start: 20120119
  4. VITAMIN D [Concomitant]

REACTIONS (12)
  - White blood cell count decreased [Recovered/Resolved]
  - Chest pain [Not Recovered/Not Resolved]
  - Dyspnoea [Not Recovered/Not Resolved]
  - Headache [Not Recovered/Not Resolved]
  - Eye irritation [Recovered/Resolved]
  - Photosensitivity reaction [Not Recovered/Not Resolved]
  - Pain [Not Recovered/Not Resolved]
  - Irritability [Not Recovered/Not Resolved]
  - Blood potassium decreased [Not Recovered/Not Resolved]
  - Fatigue [Not Recovered/Not Resolved]
  - Anaemia [Not Recovered/Not Resolved]
  - Urticaria [Not Recovered/Not Resolved]
